FAERS Safety Report 19739686 (Version 3)
Quarter: 2021Q3

REPORT INFORMATION
  Report Type: Report from Study
  Country: US (occurrence: US)
  Receive Date: 20210824
  Receipt Date: 20210922
  Transmission Date: 20211014
  Serious: Yes (Hospitalization, Other)
  Sender: FDA-Public Use
  Company Number: US-GILEAD-2021-0545159

PATIENT
  Sex: Female

DRUGS (26)
  1. CREON [Concomitant]
     Active Substance: PANCRELIPASE AMYLASE\PANCRELIPASE LIPASE\PANCRELIPASE PROTEASE
     Dosage: CREON 12K?38K?60 CAPSULE DR
  2. HYPERSAL [Concomitant]
     Active Substance: SODIUM CHLORIDE
  3. AZTREONAM LYSINE [Suspect]
     Active Substance: AZTREONAM LYSINE
     Indication: CYSTIC FIBROSIS
     Dosage: 75 MG, TID, EVERY 28 DAYS ON AND 28 DAYS OFF
     Route: 055
  4. ZYRTEC [Concomitant]
     Active Substance: CETIRIZINE HYDROCHLORIDE
  5. URSODIOL. [Concomitant]
     Active Substance: URSODIOL
  6. MEROPENEM. [Concomitant]
     Active Substance: MEROPENEM
  7. IPRATROPIUM BROMIDE AND ALBUTEROL SULFATE [Concomitant]
     Active Substance: ALBUTEROL SULFATE\IPRATROPIUM BROMIDE
  8. AZITHROMYCIN ANHYDROUS. [Concomitant]
     Active Substance: AZITHROMYCIN ANHYDROUS
  9. ALBUTEROL HFA [Concomitant]
     Active Substance: ALBUTEROL SULFATE
  10. TRIKAFTA [Concomitant]
     Active Substance: ELEXACAFTOR\IVACAFTOR\TEZACAFTOR
  11. BUDESONIDE. [Concomitant]
     Active Substance: BUDESONIDE
     Dosage: BUDESONIDE 0.25MG/2ML AMPUL?NEB
  12. ALPRAZOLAM. [Concomitant]
     Active Substance: ALPRAZOLAM
  13. MULTIVITAMINS [VITAMINS NOS] [Concomitant]
     Active Substance: VITAMINS
  14. TOBRAMYCIN. [Concomitant]
     Active Substance: TOBRAMYCIN
     Dosage: TOBRAMYCIN 300 MG/5ML AMPUL?NEB
  15. AZTREONAM LYSINE [Suspect]
     Active Substance: AZTREONAM LYSINE
     Indication: PSEUDOMONAS INFECTION
  16. CORLANOR [Concomitant]
     Active Substance: IVABRADINE HYDROCHLORIDE
     Dosage: CORLANOR 5 MG TABLET
  17. LORAZEPAM. [Concomitant]
     Active Substance: LORAZEPAM
     Dosage: LORAZEPAM 0.5 MG TABLET
  18. COMBIVENT [Concomitant]
     Active Substance: ALBUTEROL SULFATE\IPRATROPIUM BROMIDE
  19. CYCLOBENZAPRINE HYDROCHLORIDE. [Concomitant]
     Active Substance: CYCLOBENZAPRINE HYDROCHLORIDE
  20. CALCIUM [Concomitant]
     Active Substance: CALCIUM
  21. TOBI [Concomitant]
     Active Substance: TOBRAMYCIN
  22. VITAMIN D3 [Concomitant]
     Active Substance: CHOLECALCIFEROL
  23. ACETYLCYSTEINE. [Concomitant]
     Active Substance: ACETYLCYSTEINE
  24. MAGNESIUM [Concomitant]
     Active Substance: MAGNESIUM
  25. PREDNISONE. [Concomitant]
     Active Substance: PREDNISONE
  26. AZTREONAM LYSINE [Suspect]
     Active Substance: AZTREONAM LYSINE
     Indication: CYSTIC FIBROSIS LUNG

REACTIONS (3)
  - Hip fracture [Not Recovered/Not Resolved]
  - Cystic fibrosis [Not Recovered/Not Resolved]
  - Fall [Not Recovered/Not Resolved]
